FAERS Safety Report 6388624-6 (Version None)
Quarter: 2009Q4

REPORT INFORMATION
  Report Type: 
  Country: None (occurrence: None)
  Receive Date: 20091005
  Receipt Date: 20090929
  Transmission Date: 20100525
  Serious: Yes (Other)
  Sender: FDA-Public Use
  Company Number: DE-B.I. PHARMACEUTICALS,INC./RIDGEFIELD-2009-DE-06028DE

PATIENT
  Sex: Female
  Weight: 65 kg

DRUGS (1)
  1. SIFROL [Suspect]
     Indication: RESTLESS LEGS SYNDROME
     Dosage: 0.18 MG
     Dates: start: 20090201

REACTIONS (4)
  - CONDITION AGGRAVATED [None]
  - PERIPHERAL COLDNESS [None]
  - POOR PERIPHERAL CIRCULATION [None]
  - RAYNAUD'S PHENOMENON [None]
